FAERS Safety Report 7190357-3 (Version None)
Quarter: 2010Q4

REPORT INFORMATION
  Report Type: 
  Country: None (occurrence: None)
  Receive Date: 20101221
  Receipt Date: 20101221
  Transmission Date: 20110411
  Serious: Yes (Other)
  Sender: FDA-Public Use
  Company Number: None

PATIENT
  Sex: Female
  Weight: 95.2554 kg

DRUGS (1)
  1. FANAPT [Suspect]
     Indication: HALLUCINATION
     Dosage: 6MG EVERYDAY BEDTIME , 3MG EVERYDAY MORN.
     Dates: start: 20100503

REACTIONS (3)
  - ANGER [None]
  - CONDITION AGGRAVATED [None]
  - HALLUCINATION [None]
